FAERS Safety Report 19477523 (Version 1)
Quarter: 2021Q2

REPORT INFORMATION
  Report Type: Spontaneous
  Country: NL (occurrence: NL)
  Receive Date: 20210630
  Receipt Date: 20210630
  Transmission Date: 20210717
  Serious: Yes (Other)
  Sender: FDA-Public Use
  Company Number: NL-MYLANLABS-2021M1037731

PATIENT
  Sex: Male
  Weight: 96 kg

DRUGS (2)
  1. LORATADINE. [Suspect]
     Active Substance: LORATADINE
     Indication: URTICARIA
     Dosage: 1 DOSAGE FORM, QD (1X / DAY)
     Dates: start: 2016, end: 20190801
  2. COPAXONE [Concomitant]
     Active Substance: GLATIRAMER ACETATE
     Dosage: INJECTION FLUID, 40 MG/ML (MILLIGRAM PER MILLILITER)
     Dates: end: 20190801

REACTIONS (1)
  - Thrombocytopenia [Recovered/Resolved]
